FAERS Safety Report 19237337 (Version 3)
Quarter: 2021Q3

REPORT INFORMATION
  Report Type: Report from Study
  Country: US (occurrence: US)
  Receive Date: 20210510
  Receipt Date: 20210906
  Transmission Date: 20211014
  Serious: No
  Sender: FDA-Public Use
  Company Number: US-BIOVITRUM-2021US3464

PATIENT
  Age: 26 Year
  Sex: Female

DRUGS (1)
  1. KINERET [Suspect]
     Active Substance: ANAKINRA
     Indication: ARTHRALGIA
     Route: 058
     Dates: start: 20210326

REACTIONS (12)
  - Tremor [Unknown]
  - Off label use [Unknown]
  - Migraine [Unknown]
  - Cortisol decreased [Not Recovered/Not Resolved]
  - Peripheral swelling [Unknown]
  - Injection site pain [Not Recovered/Not Resolved]
  - Contusion [Unknown]
  - Musculoskeletal stiffness [Unknown]
  - Erythema [Unknown]
  - Rash [Unknown]
  - Product dose omission issue [Unknown]
  - Blood growth hormone decreased [Not Recovered/Not Resolved]

NARRATIVE: CASE EVENT DATE: 20210326
